FAERS Safety Report 25301784 (Version 2)
Quarter: 2025Q3

REPORT INFORMATION
  Report Type: Report from Study
  Country: TH (occurrence: TH)
  Receive Date: 20250512
  Receipt Date: 20250711
  Transmission Date: 20251021
  Serious: Yes (Hospitalization, Disabling, Other)
  Sender: EXELIXIS
  Company Number: TH-IPSEN Group, Research and Development-2024-22796

PATIENT
  Age: 64 Year
  Sex: Male

DRUGS (2)
  1. CABOMETYX [Suspect]
     Active Substance: CABOZANTINIB S-MALATE
     Indication: Renal cell carcinoma
     Dosage: ONCE DAILY
     Route: 048
     Dates: start: 20240924, end: 20241028
  2. CABOMETYX [Suspect]
     Active Substance: CABOZANTINIB S-MALATE
     Dosage: ONCE DAILY
     Route: 048
     Dates: start: 20250304, end: 20250412

REACTIONS (21)
  - Contusion [Unknown]
  - Deep vein thrombosis [Unknown]
  - Gingival bleeding [Unknown]
  - Epistaxis [Unknown]
  - Haematochezia [Unknown]
  - Bedridden [Unknown]
  - Gait disturbance [Unknown]
  - Gingivitis [Unknown]
  - Skin hypertrophy [Unknown]
  - Diarrhoea [Unknown]
  - Dizziness [Unknown]
  - Vomiting [Unknown]
  - Decreased appetite [Unknown]
  - Rash [Unknown]
  - Blister [Unknown]
  - Skin exfoliation [Unknown]
  - Rash [Unknown]
  - Arthralgia [Unknown]
  - Electrolyte imbalance [Unknown]
  - International normalised ratio increased [Unknown]
  - Blood creatinine increased [Unknown]

NARRATIVE: CASE EVENT DATE: 20241107
